FAERS Safety Report 8156346 (Version 4)
Quarter: 2012Q4

REPORT INFORMATION
  Report Type: Spontaneous
  Country: DE (occurrence: None)
  Receive Date: 20110914
  Receipt Date: 20120925
  Transmission Date: 20130627
  Serious: Yes (Death)
  Sender: FDA-Public Use
  Company Number: EU-2011-10162

PATIENT
  Age: 81 Year
  Sex: Female

DRUGS (29)
  1. SAMSCA [Suspect]
     Indication: HYPONATRAEMIA
     Route: 048
     Dates: start: 20101029, end: 20101103
  2. SAMSCA [Suspect]
     Indication: SIADH
     Route: 048
     Dates: start: 20101029, end: 20101103
  3. SAMSCA [Suspect]
     Indication: HYPONATRAEMIA
     Route: 048
     Dates: start: 20101105, end: 20101105
  4. SAMSCA [Suspect]
     Indication: SIADH
     Route: 048
     Dates: start: 20101105, end: 20101105
  5. SAMSCA [Suspect]
     Indication: HYPONATRAEMIA
     Route: 048
     Dates: start: 20101106, end: 20101108
  6. SAMSCA [Suspect]
     Indication: SIADH
     Route: 048
     Dates: start: 20101106, end: 20101108
  7. SAMSCA [Suspect]
     Indication: HYPONATRAEMIA
     Route: 048
     Dates: start: 20101108, end: 20101109
  8. SAMSCA [Suspect]
     Indication: SIADH
     Route: 048
     Dates: start: 20101108, end: 20101109
  9. SAMSCA [Suspect]
     Indication: HYPONATRAEMIA
     Route: 048
     Dates: start: 20101110, end: 20101112
  10. SAMSCA [Suspect]
     Indication: SIADH
     Route: 048
     Dates: start: 20101110, end: 20101112
  11. SAMSCA [Suspect]
     Indication: HYPONATRAEMIA
     Route: 048
     Dates: start: 20101113, end: 20101115
  12. SAMSCA [Suspect]
     Indication: SIADH
     Route: 048
     Dates: start: 20101113, end: 20101115
  13. SAMSCA [Suspect]
     Indication: HYPONATRAEMIA
     Route: 048
     Dates: start: 20101116, end: 20101118
  14. SAMSCA [Suspect]
     Indication: SIADH
     Route: 048
     Dates: start: 20101116, end: 20101118
  15. SAMSCA [Suspect]
     Indication: HYPONATRAEMIA
     Route: 048
     Dates: start: 20101119, end: 20101127
  16. SAMSCA [Suspect]
     Indication: SIADH
     Route: 048
     Dates: start: 20101119, end: 20101127
  17. UNACID (SULTAMICILLIN TOSILATE) [Concomitant]
  18. URSOFALK (URSODEOXYCHOLIC ACID) [Concomitant]
  19. FUROSEMID (FUROSEMIDE) [Concomitant]
  20. ZOCOR (SIMVASTATIN) [Concomitant]
  21. DOCITON (PROPRANOLOL HYDROCHLORIDE) [Concomitant]
  22. ASS (ACETYLSALICYLIC ACID) [Concomitant]
  23. L-THYROXIN (LEVOTHYROXINE SODIUM) [Concomitant]
  24. PREDNISOLON (PREDNISOLON) [Concomitant]
  25. SPIRIVA (TIOTROPIUM BROMIDE) [Concomitant]
  26. VIANI (FLUTICASONE PROPIONATE, SALMETEROL XINAFOATE) [Concomitant]
  27. TAZOBACTAM (TAZOBACTAM) [Concomitant]
  28. FRAGMIN P (HEPARIN-FRACTION, SODIUM SALT) [Concomitant]
  29. SALINE (SALINE) [Concomitant]

REACTIONS (6)
  - Hypothermia [None]
  - Urinary tract infection [None]
  - Urosepsis [None]
  - Agitation [None]
  - Hyperkalaemia [None]
  - Arrhythmia [None]
